FAERS Safety Report 22274060 (Version 1)
Quarter: 2023Q2

REPORT INFORMATION
  Report Type: Spontaneous
  Country: US (occurrence: None)
  Receive Date: 20230501
  Receipt Date: 20230501
  Transmission Date: 20230721
  Serious: Yes (Life-Threatening, Hospitalization, Disabling)
  Sender: FDA-Public Use
  Company Number: None

PATIENT
  Age: 64 Year
  Sex: Male
  Weight: 57.15 kg

DRUGS (3)
  1. VIVITROL [Suspect]
     Active Substance: NALTREXONE
     Indication: Alcoholism
     Dates: start: 20230422
  2. DIABETES [Concomitant]
  3. UNSPECIFIED INGREDIENT [Concomitant]
     Active Substance: UNSPECIFIED INGREDIENT

REACTIONS (19)
  - Cough [None]
  - Chills [None]
  - Asthenia [None]
  - Balance disorder [None]
  - Gait disturbance [None]
  - Injection site pain [None]
  - Chromaturia [None]
  - Oxygen saturation decreased [None]
  - Pneumonia [None]
  - Drug interaction [None]
  - Peroneal nerve palsy [None]
  - Lethargy [None]
  - Haematemesis [None]
  - Oesophagitis [None]
  - Impaired work ability [None]
  - Weight decreased [None]
  - Decreased appetite [None]
  - Liver function test increased [None]
  - White blood cell count increased [None]

NARRATIVE: CASE EVENT DATE: 20230422
